FAERS Safety Report 8173485-5 (Version None)
Quarter: 2012Q1

REPORT INFORMATION
  Report Type: 
  Country: None (occurrence: None)
  Receive Date: 20120229
  Receipt Date: 20120220
  Transmission Date: 20120608
  Serious: Yes (Hospitalization)
  Sender: FDA-Public Use
  Company Number: FR-JNJFOC-20120210107

PATIENT
  Sex: Female

DRUGS (11)
  1. RISPERDAL [Suspect]
     Indication: PRODUCT USED FOR UNKNOWN INDICATION
     Route: 048
     Dates: end: 20120123
  2. QUETIAPINE [Interacting]
     Route: 048
  3. VALIUM [Interacting]
     Indication: PRODUCT USED FOR UNKNOWN INDICATION
     Route: 048
     Dates: end: 20120123
  4. BISOPROLOL [Concomitant]
     Indication: HYPERTENSION
     Route: 065
  5. IRBESARTAN [Concomitant]
     Indication: HYPERTENSION
     Route: 065
  6. QUETIAPINE [Interacting]
     Indication: ILL-DEFINED DISORDER
     Route: 048
     Dates: end: 20120123
  7. QUETIAPINE [Interacting]
     Route: 048
     Dates: start: 20111222
  8. ESCITALOPRAM OXALATE [Interacting]
     Indication: PRODUCT USED FOR UNKNOWN INDICATION
     Route: 048
     Dates: start: 20111222, end: 20120123
  9. QUETIAPINE [Interacting]
     Route: 048
  10. AMLODIPINE BESYLATE [Concomitant]
     Indication: HYPERTENSION
     Route: 065
  11. ESIDRIX [Concomitant]
     Indication: HYPERTENSION
     Route: 065

REACTIONS (5)
  - CONFUSIONAL STATE [None]
  - DRUG INTERACTION [None]
  - SOMNOLENCE [None]
  - RENAL FAILURE ACUTE [None]
  - BALANCE DISORDER [None]
